FAERS Safety Report 14347437 (Version 1)
Quarter: 2017Q4

REPORT INFORMATION
  Report Type: Spontaneous
  Country: US (occurrence: US)
  Receive Date: 20171230
  Receipt Date: 20171230
  Transmission Date: 20180321
  Serious: Yes (Hospitalization)
  Sender: FDA-Public Use
  Company Number: None

PATIENT
  Age: 51 Year
  Sex: Male
  Weight: 48 kg

DRUGS (3)
  1. METFORMIN HYDROCHLORIDE. [Suspect]
     Active Substance: METFORMIN HYDROCHLORIDE
     Dates: end: 20171216
  2. CARBOPLATIN. [Suspect]
     Active Substance: CARBOPLATIN
     Dates: end: 20171201
  3. TAXOL [Suspect]
     Active Substance: PACLITAXEL
     Dates: end: 20171201

REACTIONS (8)
  - Abdominal pain [None]
  - Constipation [None]
  - Haemoglobin decreased [None]
  - Vomiting [None]
  - Haemorrhagic ascites [None]
  - Nausea [None]
  - Ascites [None]
  - Deep vein thrombosis [None]

NARRATIVE: CASE EVENT DATE: 20171215
